FAERS Safety Report 7617650-1 (Version None)
Quarter: 2011Q3

REPORT INFORMATION
  Report Type: 
  Country: None (occurrence: None)
  Receive Date: 20110718
  Receipt Date: 20110705
  Transmission Date: 20111222
  Serious: Yes (Hospitalization, Other)
  Sender: FDA-Public Use
  Company Number: GB-SANOFI-AVENTIS-200920603GDDC

PATIENT
  Age: 61 Year
  Sex: Male
  Weight: 103.2 kg

DRUGS (11)
  1. AFLIBERCEPT [Suspect]
     Dosage: DOSE UNIT:  MG/KG
     Route: 042
     Dates: start: 20090820, end: 20090820
  2. ACETAMINOPHEN [Concomitant]
     Dates: start: 19890101
  3. FLUOROURACIL [Suspect]
     Route: 042
     Dates: start: 20090820
  4. METOCLOPRAMIDE [Concomitant]
     Dates: start: 20090820
  5. LEUCOVORIN CALCIUM [Suspect]
     Dosage: DOSE UNIT:  MG/M**2
     Route: 042
     Dates: start: 20090820, end: 20090820
  6. ONDANSETRON [Concomitant]
     Dates: start: 20090820
  7. ALL OTHER THERAPEUTIC PRODUCTS [Concomitant]
     Dates: start: 20090820
  8. LOPERAMIDE [Concomitant]
     Dates: start: 20090820
  9. DEXAMETHASONE [Concomitant]
     Dates: start: 20090820
  10. TRAMADOL HCL [Concomitant]
     Dates: start: 19890101
  11. OXALIPLATIN [Suspect]
     Dosage: DOSE UNIT:  MG/M**2
     Route: 042
     Dates: start: 20090820, end: 20090820

REACTIONS (2)
  - PYODERMA GANGRENOSUM [None]
  - FOLLICULITIS [None]
